FAERS Safety Report 4497393-6 (Version None)
Quarter: 2004Q4

REPORT INFORMATION
  Report Type: 
  Country: None (occurrence: None)
  Receive Date: 20041110
  Receipt Date: 20041104
  Transmission Date: 20050328
  Serious: Yes (Hospitalization)
  Sender: FDA-Public Use
  Company Number: 200418541US

PATIENT
  Age: 2 Year
  Sex: Male
  Weight: 7.7 kg

DRUGS (13)
  1. LOVENOX [Suspect]
     Indication: DEEP VEIN THROMBOSIS
     Route: 058
     Dates: start: 20040927, end: 20041028
  2. ATARAX [Concomitant]
  3. MOTRIN [Concomitant]
  4. EMLA [Concomitant]
  5. MIRALAX [Concomitant]
  6. ZANTAC [Concomitant]
  7. LASIX [Concomitant]
  8. ALBUTEROL [Concomitant]
  9. ROBITUSSIN [Concomitant]
  10. BENADRYL /OLD FORM/ [Concomitant]
  11. PULMICORT [Concomitant]
  12. IMODIUM ^JANSSEN^ [Concomitant]
  13. TPN [Concomitant]

REACTIONS (5)
  - ALANINE AMINOTRANSFERASE INCREASED [None]
  - ASPARTATE AMINOTRANSFERASE INCREASED [None]
  - CONVULSION [None]
  - LIVER FUNCTION TEST ABNORMAL [None]
  - PYREXIA [None]
